FAERS Safety Report 9539322 (Version 1)
Quarter: 2013Q3

REPORT INFORMATION
  Report Type: Spontaneous
  Country: RU (occurrence: RU)
  Receive Date: 20130920
  Receipt Date: 20130920
  Transmission Date: 20140515
  Serious: Yes (Other)
  Sender: FDA-Public Use
  Company Number: RU-ABBVIE-13P-251-1145664-00

PATIENT
  Age: 12 Year
  Sex: Male

DRUGS (23)
  1. RITONAVIR [Suspect]
     Indication: HIV INFECTION
     Dates: start: 20101016, end: 20101027
  2. RITONAVIR [Suspect]
     Dates: start: 20101101, end: 20101130
  3. RITONAVIR [Suspect]
     Dates: start: 20101201, end: 20110331
  4. RITONAVIR [Suspect]
     Dates: start: 20110401, end: 20111004
  5. RITONAVIR [Suspect]
     Dates: start: 20111005, end: 20120116
  6. RITONAVIR [Suspect]
     Dates: start: 20120117, end: 20120824
  7. RITONAVIR [Suspect]
     Dates: start: 20120824
  8. ABACAVIR SULFATE [Suspect]
     Indication: HIV INFECTION
     Dates: start: 20100824, end: 20101026
  9. ABACAVIR SULFATE [Suspect]
     Dates: start: 20101101, end: 20101130
  10. ABACAVIR SULFATE [Suspect]
     Dates: start: 20101201, end: 20110331
  11. ABACAVIR SULFATE [Suspect]
     Dates: start: 20110401, end: 20111004
  12. ABACAVIR SULFATE [Suspect]
     Dates: start: 20111005, end: 20120116
  13. ABACAVIR SULFATE [Suspect]
     Dates: start: 20120117, end: 20120824
  14. ABACAVIR SULFATE [Suspect]
     Dates: start: 20120824
  15. DARUNAVIR [Suspect]
     Indication: HIV INFECTION
     Dates: start: 20101016, end: 20101027
  16. DARUNAVIR [Suspect]
     Dates: start: 20101101, end: 20101130
  17. DARUNAVIR [Suspect]
     Dates: start: 20101201, end: 20110331
  18. DARUNAVIR [Suspect]
     Dates: start: 20110401, end: 20111004
  19. DARUNAVIR [Suspect]
     Dates: start: 20111005, end: 20120116
  20. DARUNAVIR [Suspect]
     Dates: start: 20120824
  21. ETRAVIRINE [Concomitant]
     Indication: PRODUCT USED FOR UNKNOWN INDICATION
     Dates: start: 20101016, end: 20101027
  22. ETRAVIRINE [Concomitant]
     Dates: start: 20111005, end: 20120116
  23. ETRAVIRINE [Concomitant]
     Dates: start: 20120824

REACTIONS (11)
  - Chronic tonsillitis [Unknown]
  - Pharyngitis [Unknown]
  - Growth retardation [Unknown]
  - Splenomegaly [Unknown]
  - Nephrolithiasis [Unknown]
  - Sinus arrhythmia [Unknown]
  - Haematuria [Not Recovered/Not Resolved]
  - Enuresis [Not Recovered/Not Resolved]
  - Therapeutic response unexpected [Unknown]
  - Urinary tract infection [Unknown]
  - Proteinuria [Not Recovered/Not Resolved]
